FAERS Safety Report 18097865 (Version 1)
Quarter: 2020Q3

REPORT INFORMATION
  Report Type: Spontaneous
  Country: US (occurrence: US)
  Receive Date: 20200731
  Receipt Date: 20200731
  Transmission Date: 20201103
  Serious: No
  Sender: FDA-Public Use
  Company Number: US-PFIZER INC-2020290070

PATIENT
  Age: 65 Year
  Sex: Female
  Weight: 83.46 kg

DRUGS (1)
  1. NIVESTYM [Suspect]
     Active Substance: FILGRASTIM-AAFI
     Indication: WHITE BLOOD CELL COUNT
     Dosage: UNK, WEEKLY (DOSAGE UNKNOWN INJECTION ONCE A WEEK ON WEDNESDAY)
     Dates: start: 20200727

REACTIONS (1)
  - Illness [Not Recovered/Not Resolved]
